FAERS Safety Report 7801483-7 (Version None)
Quarter: 2011Q4

REPORT INFORMATION
  Report Type: 
  Country: None (occurrence: None)
  Receive Date: 20111007
  Receipt Date: 20110926
  Transmission Date: 20120403
  Serious: Yes (Hospitalization)
  Sender: FDA-Public Use
  Company Number: US-CELGENEUS-163-21880-11093234

PATIENT
  Sex: Female
  Weight: 40.86 kg

DRUGS (11)
  1. DIURETICS [Concomitant]
     Route: 065
  2. OXYCONTIN [Concomitant]
     Dosage: 10 MILLIGRAM
     Route: 048
     Dates: start: 20110919
  3. ACYCLOVIR [Concomitant]
     Dosage: 400 MILLIGRAM
     Route: 048
     Dates: start: 20110919
  4. REVLIMID [Suspect]
     Dosage: 5MG ALTERNATING WITH 10MG
     Route: 048
     Dates: start: 20110901
  5. OXYCODONE HCL [Concomitant]
     Indication: PAIN
     Dosage: 1-2 TABLETS
     Route: 048
     Dates: start: 20110919
  6. PRADAXA [Concomitant]
     Dosage: 75 MILLIGRAM
     Route: 048
     Dates: start: 20110919
  7. DEXAMETHASONE [Concomitant]
     Dosage: 8 MILLIGRAM
     Route: 048
     Dates: start: 20110920
  8. REVLIMID [Suspect]
     Indication: MULTIPLE MYELOMA
     Dosage: 10 MILLIGRAM
     Route: 048
     Dates: start: 20110827, end: 20110911
  9. OXYCODONE HCL AND ACETAMINOPHEN [Concomitant]
     Dosage: 5-325MG
     Route: 048
     Dates: start: 20110920
  10. MEGESTROL ACETATE [Concomitant]
     Dosage: 4 TEASPOON
     Route: 048
     Dates: start: 20110919
  11. SULFAMETHOXAZOLE AND TRIMETHOPRIM [Concomitant]
     Dosage: 1 TABLET
     Route: 048
     Dates: start: 20110818

REACTIONS (3)
  - HYPONATRAEMIA [None]
  - ASTHENIA [None]
  - PAIN [None]
